FAERS Safety Report 13437689 (Version 1)
Quarter: 2017Q2

REPORT INFORMATION
  Report Type: Spontaneous
  Country: US (occurrence: US)
  Receive Date: 20170413
  Receipt Date: 20170413
  Transmission Date: 20170830
  Serious: No
  Sender: FDA-Public Use
  Company Number: US-SA-2017SA014795

PATIENT
  Age: 58 Year
  Sex: Male

DRUGS (1)
  1. ALLEGRA-D 24 HOUR [Suspect]
     Active Substance: FEXOFENADINE HYDROCHLORIDE\PSEUDOEPHEDRINE HYDROCHLORIDE
     Indication: NASAL CONGESTION
     Dosage: LOT:HH1261(7) CONSUMER WASN^T SURE IF THE LAST DIGIT WAS A ^1^ OR ^7^.
     Route: 048
     Dates: start: 20170115

REACTIONS (4)
  - Condition aggravated [Unknown]
  - Product physical issue [Unknown]
  - Medication residue present [Unknown]
  - Expired product administered [Unknown]
